FAERS Safety Report 8658252 (Version 2)
Quarter: 2012Q4

REPORT INFORMATION
  Report Type: 
  Country: US (occurrence: US)
  Receive Date: 20120710
  Receipt Date: 20121204
  Transmission Date: 20130627
  Serious: Yes (Death)
  Sender: FDA-Public Use
  Company Number: US-ASTRAZENECA-2012SE46146

PATIENT
  Age: 43 Year
  Sex: Male

DRUGS (5)
  1. SEROQUEL [Suspect]
     Route: 048
  2. PROZAC [Concomitant]
  3. PAIN MEDICATION [Concomitant]
  4. OXYCODONE [Concomitant]
  5. SOMA [Concomitant]

REACTIONS (1)
  - Toxicity to various agents [Fatal]
